FAERS Safety Report 9298546 (Version 2)
Quarter: 2013Q2

REPORT INFORMATION
  Report Type: Spontaneous
  Country: BE (occurrence: BE)
  Receive Date: 20130520
  Receipt Date: 20130521
  Transmission Date: 20140414
  Serious: Yes (Hospitalization, Other)
  Sender: FDA-Public Use
  Company Number: BE-ASTRAZENECA-2013SE34553

PATIENT
  Age: 698 Month
  Sex: Male

DRUGS (8)
  1. SEROQUEL XR [Suspect]
     Indication: DEPRESSION
     Route: 048
  2. SEROQUEL XR [Suspect]
     Indication: ANXIETY
     Route: 048
  3. SEROQUEL XR [Suspect]
     Indication: AGGRESSION
     Route: 048
  4. SEROQUEL XR [Suspect]
     Indication: DEPRESSION
     Route: 048
     Dates: start: 20130426
  5. SEROQUEL XR [Suspect]
     Indication: ANXIETY
     Route: 048
     Dates: start: 20130426
  6. SEROQUEL XR [Suspect]
     Indication: AGGRESSION
     Route: 048
     Dates: start: 20130426
  7. VALIUM [Suspect]
     Route: 065
     Dates: start: 20130426
  8. ZOLPIDEM [Suspect]
     Route: 065
     Dates: start: 20130426

REACTIONS (5)
  - Overdose [Unknown]
  - Poisoning [Unknown]
  - Electrocardiogram ST segment elevation [Unknown]
  - Aggression [Unknown]
  - Respiratory depression [Unknown]
